FAERS Safety Report 8601102-6 (Version None)
Quarter: 2012Q3

REPORT INFORMATION
  Report Type: 
  Country: None (occurrence: None)
  Receive Date: 20120817
  Receipt Date: 20120813
  Transmission Date: 20120928
  Serious: Yes (Other)
  Sender: FDA-Public Use
  Company Number: PHEH2012US015802

PATIENT
  Age: 60 Year
  Sex: Female

DRUGS (2)
  1. TEGRETOL [Suspect]
     Dosage: 100 MG, UNK
  2. LEVOTHYROXINE SODIUM [Concomitant]

REACTIONS (3)
  - TREMOR [None]
  - CIRCULATORY COLLAPSE [None]
  - BONE PAIN [None]
